FAERS Safety Report 8611590-7 (Version None)
Quarter: 2012Q3

REPORT INFORMATION
  Report Type: 
  Country: None (occurrence: None)
  Receive Date: 20120822
  Receipt Date: 20120816
  Transmission Date: 20120928
  Serious: Yes (Hospitalization, Other)
  Sender: FDA-Public Use
  Company Number: PHHY2012BR062832

PATIENT
  Sex: Female
  Weight: 58 kg

DRUGS (4)
  1. SIMVASTATIN [Concomitant]
     Indication: BLOOD CHOLESTEROL INCREASED
     Dosage: 1 DF (20 MG), A DAY
     Route: 048
  2. DIOVAN [Suspect]
     Indication: HYPERTENSION
     Dosage: 1 DF (320 MG), QD (IN THE MORNING)
     Route: 048
  3. ASPIRIN [Concomitant]
     Indication: ANTICOAGULANT THERAPY
     Dosage: 1 DF (100 MG), A DAY
     Route: 048
  4. LEVOTHYROXINE SODIUM [Concomitant]
     Indication: THYROID DISORDER
     Dosage: 1 DF (75 MG), A DAY
     Route: 048

REACTIONS (9)
  - UTERINE NEOPLASM [None]
  - GLUCOSE TOLERANCE IMPAIRED [None]
  - ARTHROPATHY [None]
  - ABASIA [None]
  - RHEUMATOID ARTHRITIS [None]
  - ARTERIAL OCCLUSIVE DISEASE [None]
  - HYPERTENSION [None]
  - OVARIAN NEOPLASM [None]
  - ARTHRALGIA [None]
